FAERS Safety Report 5195760-9 (Version None)
Quarter: 2007Q1

REPORT INFORMATION
  Report Type: 
  Country: None (occurrence: None)
  Receive Date: 20070102
  Receipt Date: 20061221
  Transmission Date: 20070707
  Serious: Yes (Hospitalization)
  Sender: FDA-Public Use
  Company Number: DE-ROCHE-476229

PATIENT
  Age: 40 Year
  Sex: Female
  Weight: 85 kg

DRUGS (7)
  1. PEG-INTERFERON A-2A (RO 25-8310) [Suspect]
     Route: 058
     Dates: start: 20060317, end: 20061216
  2. RIBAVIRIN [Suspect]
     Dosage: ADMINISTED IN A SPLIT DOSE OF 3X200 MG TABLETS TWICE A DAY.
     Route: 048
     Dates: start: 20060317, end: 20061216
  3. AMANTADINE HCL [Suspect]
     Route: 048
     Dates: start: 20060317, end: 20060323
  4. AMANTADINE HCL [Suspect]
     Route: 048
     Dates: start: 20060324, end: 20061216
  5. BISOHEXAL PLUS [Concomitant]
     Dates: start: 20050215
  6. ACETAMINOPHEN [Concomitant]
     Dates: start: 20060418
  7. APRANAX TABLETS NOS [Concomitant]
     Dates: start: 20060815, end: 20060815

REACTIONS (1)
  - FACIAL PALSY [None]
